FAERS Safety Report 18396323 (Version 10)
Quarter: 2021Q3

REPORT INFORMATION
  Report Type: Spontaneous
  Country: CA (occurrence: CA)
  Receive Date: 20201019
  Receipt Date: 20210907
  Transmission Date: 20211014
  Serious: Yes (Other)
  Sender: FDA-Public Use
  Company Number: CA-CELLTRION INC.-2020CA023847

PATIENT

DRUGS (25)
  1. INFLECTRA [Suspect]
     Active Substance: INFLIXIMAB-DYYB
     Dosage: 400 MG, Q (EVERY) 0, 2, 6 AND THEN EVERY 8 WEEKS
     Route: 042
     Dates: start: 20200512
  2. INFLECTRA [Suspect]
     Active Substance: INFLIXIMAB-DYYB
     Dosage: 10 MG/KG, 0,2 AND 6 WEEKS, THEN EVERY 4 WEEKS
     Route: 042
     Dates: start: 20201130
  3. INFLECTRA [Suspect]
     Active Substance: INFLIXIMAB-DYYB
     Dosage: 10 MG/KG, 0,2 AND 6 WEEKS, THEN EVERY 4 WEEKS
     Route: 042
     Dates: start: 20210107
  4. INFLECTRA [Suspect]
     Active Substance: INFLIXIMAB-DYYB
     Dosage: 10 MG/KG, 0,2 AND 6 WEEKS, THEN EVERY 4 WEEKS
     Route: 042
     Dates: start: 20210205
  5. INFLECTRA [Suspect]
     Active Substance: INFLIXIMAB-DYYB
     Dosage: 10 MG/KG, 0,2 AND 6 WEEKS, THEN EVERY 4 WEEKS
     Route: 042
     Dates: start: 20210625
  6. INFLECTRA [Suspect]
     Active Substance: INFLIXIMAB-DYYB
     Dosage: 5MG/KG EVERY 4 WEEKS
     Route: 042
     Dates: start: 20200728
  7. INFLECTRA [Suspect]
     Active Substance: INFLIXIMAB-DYYB
     Dosage: 10 MG/KG, 0,2 AND 6 WEEKS, THEN EVERY 4 WEEKS
     Route: 042
     Dates: start: 20201020
  8. INFLECTRA [Suspect]
     Active Substance: INFLIXIMAB-DYYB
     Dosage: 10 MG/KG, 0,2 AND 6 WEEKS, THEN EVERY 4 WEEKS
     Route: 042
     Dates: start: 20210430
  9. INFLECTRA [Suspect]
     Active Substance: INFLIXIMAB-DYYB
     Dosage: 10 MG/KG, 0,2 AND 6 WEEKS, THEN EVERY 4 WEEKS
     Route: 042
     Dates: start: 20201130
  10. INFLECTRA [Suspect]
     Active Substance: INFLIXIMAB-DYYB
     Dosage: 10 MG/KG, 0,2 AND 6 WEEKS, THEN EVERY 4 WEEKS
     Route: 042
     Dates: start: 20210528
  11. INFLECTRA [Suspect]
     Active Substance: INFLIXIMAB-DYYB
     Indication: COLITIS ULCERATIVE
     Dosage: 400 MG, Q (EVERY) 0, 2, 6 AND THEN EVERY 8 WEEKS
     Route: 042
     Dates: start: 20200329
  12. INFLECTRA [Suspect]
     Active Substance: INFLIXIMAB-DYYB
     Dosage: 10 MG/KG ONCE/ (EVERY 4 WEEKS)
     Route: 042
     Dates: start: 20200629
  13. INFLECTRA [Suspect]
     Active Substance: INFLIXIMAB-DYYB
     Dosage: THEN 5MG/KG EVERY 4 WEEKS
     Route: 042
  14. INFLECTRA [Suspect]
     Active Substance: INFLIXIMAB-DYYB
     Dosage: 5MG/KG EVERY 4 WEEKS
     Route: 042
     Dates: start: 20200925
  15. INFLECTRA [Suspect]
     Active Substance: INFLIXIMAB-DYYB
     Dosage: 10 MG/KG, 0,2 AND 6 WEEKS, THEN EVERY 4 WEEKS
     Route: 042
     Dates: start: 20210331
  16. INFLECTRA [Suspect]
     Active Substance: INFLIXIMAB-DYYB
     Dosage: 10 MG/KG, 0,2 AND 6 WEEKS, THEN EVERY 4 WEEKS
     Route: 042
     Dates: start: 20210726
  17. INFLECTRA [Suspect]
     Active Substance: INFLIXIMAB-DYYB
     Dosage: THEN 5MG/KG EVERY 4 WEEKS
     Route: 042
  18. INFLECTRA [Suspect]
     Active Substance: INFLIXIMAB-DYYB
     Dosage: 10 MG/KG, 0,2 AND 6 WEEKS, THEN EVERY 4 WEEKS
     Route: 042
     Dates: start: 20210305
  19. INFLECTRA [Suspect]
     Active Substance: INFLIXIMAB-DYYB
     Dosage: THEN 5MG/KG EVERY 4 WEEKS
     Route: 042
  20. INFLECTRA [Suspect]
     Active Substance: INFLIXIMAB-DYYB
     Dosage: THEN 5MG/KG EVERY 4 WEEKS
     Route: 042
  21. INFLECTRA [Suspect]
     Active Substance: INFLIXIMAB-DYYB
     Dosage: THEN 5MG/KG EVERY 4 WEEKS
     Route: 042
  22. INFLECTRA [Suspect]
     Active Substance: INFLIXIMAB-DYYB
     Dosage: 10 MG/KG, 0,2 AND 6 WEEKS, THEN EVERY 4 WEEKS
     Route: 042
     Dates: start: 20210107
  23. INFLECTRA [Suspect]
     Active Substance: INFLIXIMAB-DYYB
     Dosage: 10 MG/KG, 0,2 AND 6 WEEKS, THEN EVERY 4 WEEKS
     Route: 042
     Dates: start: 20210825
  24. INFLECTRA [Suspect]
     Active Substance: INFLIXIMAB-DYYB
     Dosage: 5 MG/KG
     Route: 042
     Dates: start: 202005
  25. CORTISONE [Concomitant]
     Active Substance: CORTISONE
     Dosage: UNK

REACTIONS (9)
  - Condition aggravated [Recovered/Resolved]
  - Gout [Unknown]
  - Decreased appetite [Unknown]
  - Nasopharyngitis [Unknown]
  - Conjunctivitis [Recovered/Resolved]
  - Drug level decreased [Unknown]
  - Nasal congestion [Unknown]
  - Cough [Unknown]
  - Off label use [Unknown]
